FAERS Safety Report 7493184-2 (Version None)
Quarter: 2011Q2

REPORT INFORMATION
  Report Type: 
  Country: None (occurrence: None)
  Receive Date: 20110519
  Receipt Date: 20110519
  Transmission Date: 20111010
  Serious: Yes (Other)
  Sender: FDA-Public Use
  Company Number: None

PATIENT
  Age: 52 Year
  Sex: Female
  Weight: 54.4316 kg

DRUGS (1)
  1. LEVAQUIN [Suspect]
     Indication: BRONCHITIS
     Dosage: 500 MG 1 PER DAY PO
     Route: 048
     Dates: start: 20110317, end: 20110322

REACTIONS (3)
  - DECREASED ACTIVITY [None]
  - ABASIA [None]
  - ARTHRALGIA [None]
